FAERS Safety Report 7787115-5 (Version None)
Quarter: 2011Q3

REPORT INFORMATION
  Report Type: 
  Country: None (occurrence: None)
  Receive Date: 20110929
  Receipt Date: 20110921
  Transmission Date: 20111222
  Serious: Yes (Hospitalization)
  Sender: FDA-Public Use
  Company Number: IN-SANOFI-AVENTIS-2011SA059702

PATIENT
  Age: 61 Year
  Sex: Male

DRUGS (8)
  1. HMG COA REDUCTASE INHIBITORS [Concomitant]
  2. DIURETICS [Concomitant]
  3. ANGIOTENSIN II ANTAGONISTS [Concomitant]
  4. BETA BLOCKING AGENTS [Concomitant]
  5. ASPIRIN [Suspect]
     Route: 048
  6. METFORMIN HCL [Concomitant]
  7. CLOPIDOGREL BISULFATE [Suspect]
     Route: 048
  8. GLIMEPIRIDE [Concomitant]

REACTIONS (2)
  - ANAEMIA [None]
  - FATIGUE [None]
